FAERS Safety Report 23686036 (Version 1)
Quarter: 2024Q1

REPORT INFORMATION
  Report Type: Spontaneous
  Country: US (occurrence: US)
  Receive Date: 20240329
  Receipt Date: 20240329
  Transmission Date: 20240410
  Serious: Yes (Hospitalization, Other)
  Sender: FDA-Public Use
  Company Number: US-SUN PHARMACEUTICAL INDUSTRIES LTD-2024R1-438610

PATIENT
  Age: 12 Year
  Sex: Female

DRUGS (8)
  1. BACTRIM [Suspect]
     Active Substance: SULFAMETHOXAZOLE\TRIMETHOPRIM
     Indication: Product used for unknown indication
     Dosage: UNK
     Route: 065
     Dates: start: 20221020
  2. BACTRIM [Suspect]
     Active Substance: SULFAMETHOXAZOLE\TRIMETHOPRIM
     Dosage: UNK
     Route: 065
     Dates: start: 20221024
  3. ITRACONAZOLE [Suspect]
     Active Substance: ITRACONAZOLE
     Indication: Product used for unknown indication
     Dosage: UNK
     Route: 065
  4. ACTIMMUNE [Suspect]
     Active Substance: INTERFERON GAMMA-1B
     Indication: Neutrophil function disorder
     Dosage: UNK
     Route: 058
     Dates: start: 20221020
  5. ACTIMMUNE [Suspect]
     Active Substance: INTERFERON GAMMA-1B
     Dosage: UNK
     Route: 058
     Dates: start: 20221024
  6. ACETAMINOPHEN [Concomitant]
     Active Substance: ACETAMINOPHEN
     Indication: Product used for unknown indication
     Dosage: UNK
     Route: 065
  7. VITAMINS NOS [Concomitant]
     Active Substance: VITAMINS
     Indication: Product used for unknown indication
     Dosage: UNK
     Route: 065
  8. LIDOCAINE [Concomitant]
     Active Substance: LIDOCAINE
     Indication: Product used for unknown indication
     Dosage: UNK (4%)
     Route: 065

REACTIONS (20)
  - Thrombocytopenia [Unknown]
  - Haematochezia [Not Recovered/Not Resolved]
  - Pneumonia [Unknown]
  - Petechiae [Recovered/Resolved]
  - Growth retardation [Unknown]
  - Head discomfort [Unknown]
  - Feeling abnormal [Unknown]
  - Breast mass [Unknown]
  - Dyspnoea [Unknown]
  - Iron deficiency [Not Recovered/Not Resolved]
  - Erythema [Unknown]
  - Nasal odour [Unknown]
  - Flushing [Unknown]
  - Feeling hot [Recovered/Resolved]
  - Decreased appetite [Unknown]
  - Abdominal discomfort [Not Recovered/Not Resolved]
  - Stress [Unknown]
  - Wound [Unknown]
  - Pain [Recovered/Resolved]
  - Fear of injection [Unknown]

NARRATIVE: CASE EVENT DATE: 20220101
